FAERS Safety Report 5277473-8 (Version None)
Quarter: 2007Q1

REPORT INFORMATION
  Report Type: 
  Country: None (occurrence: None)
  Receive Date: 20070327
  Receipt Date: 20070326
  Transmission Date: 20070707
  Serious: Yes (Hospitalization, Other)
  Sender: FDA-Public Use
  Company Number: HQWYE863107MAR05

PATIENT
  Sex: Female
  Weight: 60.7 kg

DRUGS (8)
  1. RAPAMUNE [Suspect]
     Indication: PROPHYLAXIS AGAINST TRANSPLANT REJECTION
     Route: 048
     Dates: start: 20041112, end: 20050202
  2. RAPAMUNE [Suspect]
     Route: 048
     Dates: start: 20050203
  3. PREDNISONE [Concomitant]
     Route: 048
     Dates: start: 20050211
  4. RANITIDINE [Concomitant]
     Route: 048
     Dates: start: 20050112
  5. NYSTATIN [Concomitant]
     Route: 048
     Dates: start: 20050112
  6. SULFAMETHOXAZOLE + TRIMETHOPRIM [Concomitant]
     Route: 048
     Dates: start: 20050112
  7. CYCLOSPORINE [Suspect]
     Route: 048
     Dates: start: 20050222
  8. ACETYLSALICYLIC ACID SRT [Concomitant]
     Route: 048
     Dates: start: 20050112

REACTIONS (1)
  - RENAL FAILURE ACUTE [None]
